FAERS Safety Report 7493930-8 (Version None)
Quarter: 2011Q2

REPORT INFORMATION
  Report Type: 
  Country: None (occurrence: None)
  Receive Date: 20110520
  Receipt Date: 20110516
  Transmission Date: 20111010
  Serious: Yes (Hospitalization)
  Sender: FDA-Public Use
  Company Number: DE-ROCHE-774592

PATIENT
  Sex: Female
  Weight: 65 kg

DRUGS (2)
  1. TRASTUZUMAB [Suspect]
     Indication: BREAST CANCER
     Dosage: 6TH CYCLE ON 19 APRIL 2011
     Route: 042
     Dates: end: 20110419
  2. DOCETAXEL [Suspect]
     Indication: BREAST CANCER
     Dosage: 6TH CYCLE ON 19 APRIL 2011
     Route: 042
     Dates: end: 20110419

REACTIONS (2)
  - PELVIC ABSCESS [None]
  - FEBRILE NEUTROPENIA [None]
